FAERS Safety Report 25030174 (Version 1)
Quarter: 2025Q1

REPORT INFORMATION
  Report Type: Spontaneous
  Country: IT (occurrence: IT)
  Receive Date: 20250303
  Receipt Date: 20250303
  Transmission Date: 20250408
  Serious: Yes (Death, Other)
  Sender: TEVA
  Company Number: IT-TEVA-VS-3304299

PATIENT
  Age: 46 Year
  Sex: Female

DRUGS (2)
  1. CARBOPLATIN [Suspect]
     Active Substance: CARBOPLATIN
     Indication: Neuroendocrine carcinoma
     Dosage: AREA UNDER CURVE 5 ON DAY 1; EVERY 21 DAYS; RECEIVED 2 CYCLES LASTLY
     Route: 065
     Dates: start: 202302, end: 2023
  2. ETOPOSIDE [Suspect]
     Active Substance: ETOPOSIDE
     Indication: Neuroendocrine carcinoma
     Dosage: 100 MG/MQ ON DAY1-3; EVERY 21 DAYS; RECEIVED 2 CYCLES LASTLY
     Route: 065
     Dates: start: 202302, end: 2023

REACTIONS (1)
  - Drug ineffective [Fatal]

NARRATIVE: CASE EVENT DATE: 20230101
